FAERS Safety Report 6264074-8 (Version None)
Quarter: 2009Q3

REPORT INFORMATION
  Report Type: 
  Country: None (occurrence: None)
  Receive Date: 20090706
  Receipt Date: 20080610
  Transmission Date: 20100115
  Serious: Yes (Other)
  Sender: FDA-Public Use
  Company Number: 569320

PATIENT
  Age: 60 Year
  Sex: Male

DRUGS (1)
  1. CELLCEPT [Suspect]
     Indication: PROPHYLAXIS AGAINST TRANSPLANT REJECTION
     Dosage: 250 MG  2 PER DAY
     Dates: start: 20040101

REACTIONS (2)
  - ABNORMAL DREAMS [None]
  - HALLUCINATION [None]
